FAERS Safety Report 10304202 (Version 1)
Quarter: 2014Q3

REPORT INFORMATION
  Report Type: Spontaneous
  Country: US (occurrence: US)
  Receive Date: 20140714
  Receipt Date: 20140714
  Transmission Date: 20150326
  Serious: No
  Sender: FDA-Public Use
  Company Number: US-BAXTER-2014BAX035703

PATIENT
  Sex: Female

DRUGS (1)
  1. 0.9% SODIUM CHLORIDE [Suspect]
     Active Substance: SODIUM CHLORIDE
     Indication: WOUND TREATMENT
     Route: 061
     Dates: start: 201403

REACTIONS (1)
  - Impaired healing [Recovering/Resolving]
